FAERS Safety Report 25894476 (Version 1)
Quarter: 2025Q4

REPORT INFORMATION
  Report Type: Spontaneous
  Country: IL (occurrence: IL)
  Receive Date: 20251008
  Receipt Date: 20251008
  Transmission Date: 20260117
  Serious: Yes (Other)
  Sender: TEVA
  Company Number: IL-TEVA-VS-3379266

PATIENT
  Age: 57 Year
  Sex: Female

DRUGS (3)
  1. LETROZOLE [Suspect]
     Active Substance: LETROZOLE
     Indication: Ovarian cancer stage IV
     Route: 065
     Dates: start: 20250720
  2. PALBOCICLIB [Suspect]
     Active Substance: PALBOCICLIB
     Indication: Ovarian cancer stage IV
     Dosage: TIME INTERVAL: CYCLICAL: 125 MG PER DAY
     Route: 065
     Dates: start: 20250820, end: 20250910
  3. PALBOCICLIB [Suspect]
     Active Substance: PALBOCICLIB
     Indication: Ovarian cancer stage IV
     Dosage: TIME INTERVAL: CYCLICAL
     Route: 065
     Dates: start: 20250720, end: 20250809

REACTIONS (2)
  - Neutropenia [Unknown]
  - Thrombocytopenia [Recovered/Resolved]

NARRATIVE: CASE EVENT DATE: 20250801
